FAERS Safety Report 6942474-8 (Version None)
Quarter: 2010Q3

REPORT INFORMATION
  Report Type: 
  Country: None (occurrence: None)
  Receive Date: 20100826
  Receipt Date: 20100813
  Transmission Date: 20110219
  Serious: Yes (Hospitalization, Other)
  Sender: FDA-Public Use
  Company Number: US-B.I. PHARMACEUTICALS,INC./RIDGEFIELD-2010-BP-06385BP

PATIENT
  Age: 55 Year
  Sex: Female
  Weight: 54 kg

DRUGS (6)
  1. MOBIC [Suspect]
     Indication: OSTEOARTHRITIS
     Dosage: 7.5 MG
     Route: 048
     Dates: start: 20071106, end: 20080425
  2. DIOVAN HCT [Concomitant]
     Dates: start: 20060112
  3. METOPROLOL SUCCINATE [Concomitant]
     Dates: start: 20060112
  4. EFFEXOR XR [Concomitant]
     Dates: start: 20060814
  5. LUNESTA [Concomitant]
     Dates: start: 20060828
  6. MAXALT [Concomitant]
     Dates: start: 20070326

REACTIONS (14)
  - ABDOMINAL PAIN [None]
  - ABDOMINAL PAIN UPPER [None]
  - ANAEMIA [None]
  - DECREASED APPETITE [None]
  - DIARRHOEA [None]
  - DYSGEUSIA [None]
  - DYSPEPSIA [None]
  - EXTRASYSTOLES [None]
  - HYPOMAGNESAEMIA [None]
  - ISCHAEMIC CARDIOMYOPATHY [None]
  - NAUSEA [None]
  - PLATELET COUNT DECREASED [None]
  - VENTRICULAR EXTRASYSTOLES [None]
  - WEIGHT DECREASED [None]
